FAERS Safety Report 7771154-4 (Version None)
Quarter: 2011Q3

REPORT INFORMATION
  Report Type: 
  Country: None (occurrence: None)
  Receive Date: 20110922
  Receipt Date: 20110209
  Transmission Date: 20111222
  Serious: No
  Sender: FDA-Public Use
  Company Number: US-ASTRAZENECA-2007UW05050

PATIENT
  Sex: Male
  Weight: 108.4 kg

DRUGS (7)
  1. CITALOPRAM HYDROBROMIDE [Concomitant]
     Dosage: 20 MG
  2. SEROQUEL [Suspect]
     Indication: DEPRESSION
     Dosage: 25 TO 300 MG
     Route: 048
     Dates: start: 20040109, end: 20051006
  3. RISPERDAL [Concomitant]
     Dosage: .25 MG
     Dates: start: 20060601
  4. ZOLOFT [Concomitant]
     Dosage: 20 MG QD
     Dates: start: 19940601
  5. FLUOXETINE [Concomitant]
     Dosage: 40 MG
  6. DIVALPROEX SODIUM [Concomitant]
     Dosage: 500 MG QD
     Dates: start: 20050901
  7. VENLAFFAXINE [Concomitant]
     Dates: start: 20040201

REACTIONS (2)
  - TYPE 2 DIABETES MELLITUS [None]
  - OBESITY [None]
